FAERS Safety Report 7386040-1 (Version None)
Quarter: 2011Q1

REPORT INFORMATION
  Report Type: 
  Country: None (occurrence: None)
  Receive Date: 20110331
  Receipt Date: 20110317
  Transmission Date: 20110831
  Serious: Yes (Other)
  Sender: FDA-Public Use
  Company Number: US-ELI_LILLY_AND_COMPANY-US201001003605

PATIENT
  Sex: Female

DRUGS (34)
  1. FORTEO [Suspect]
     Dosage: 20 UG, DAILY (1/D)
     Route: 065
  2. METOPROLOL [Concomitant]
     Indication: BLOOD PRESSURE
     Dosage: 100 MG, BID
  3. NITROGLYCERIN [Concomitant]
     Indication: CARDIAC DISORDER
     Dosage: 0.4 MG, QD
     Route: 062
  4. PLAVIX [Concomitant]
     Indication: CARDIAC DISORDER
     Dosage: 75 MG, QD
  5. DULCOLAX [Concomitant]
  6. EXFORGE [Concomitant]
     Indication: BLOOD PRESSURE
     Dosage: 320 MG, QD
  7. CATAPRES                                /UNK/ [Concomitant]
     Indication: CARDIAC DISORDER
     Dosage: 0.2 MG, WEEKLY (1/W)
  8. NITROGLYCERIN [Concomitant]
  9. MIRALAX [Concomitant]
     Indication: GASTROINTESTINAL MOTILITY DISORDER
     Dosage: UNK, QD
  10. CALCIUM 600 PLUS VITAMIN D [Concomitant]
     Dosage: UNK, BID
  11. CO Q10 [Concomitant]
     Dosage: 50 MG, QD
  12. TEKTURNA [Concomitant]
     Indication: BLOOD PRESSURE
     Dosage: 300 MG, QD
  13. ASPIRIN [Concomitant]
     Indication: CARDIAC DISORDER
     Dosage: 81 MG, QD
  14. NITROGLYCERIN [Concomitant]
     Indication: PAIN
     Dosage: 400 MG, PRN
     Route: 002
  15. PREDNISONE [Concomitant]
     Indication: OSTEOPOROSIS
     Dosage: 2.5 MG, QD
  16. AMBIEN [Concomitant]
     Indication: STRESS
     Dosage: 10 MG, PRN
  17. FORTEO [Suspect]
     Indication: OSTEOPOROSIS
     Dosage: 20 UG, DAILY (1/D)
     Dates: start: 20091111
  18. FORTEO [Suspect]
     Dosage: 20 UG, DAILY (1/D)
  19. HYDROCODONE BITARTRATE [Concomitant]
  20. PREDNISONE [Concomitant]
     Dosage: 5 MG, UNK
  21. NITROLINGUAL PUMPSPRAY [Concomitant]
  22. FORTEO [Suspect]
     Dosage: 20 UG, DAILY (1/D)
  23. CYCLOBENZAPRINE [Concomitant]
  24. OMEPRAZOLE [Concomitant]
     Indication: GASTROOESOPHAGEAL REFLUX DISEASE
     Dosage: 20 MG, QD
  25. FUROSEMIDE [Concomitant]
     Dosage: 80 MG, BID
  26. SYNTHROID [Concomitant]
  27. ZOLPIDEM [Concomitant]
  28. LEVOTHYROXINE SODIUM [Concomitant]
     Indication: NEOPLASM
     Dosage: 0.05 MG, QD
  29. DOCUSATE [Concomitant]
     Indication: GASTROINTESTINAL MOTILITY DISORDER
     Dosage: 240 MG, PRN
  30. CLONIDINE [Concomitant]
     Indication: HYPERTENSION
     Dosage: 0.1 MG, PRN
  31. FENTANYL [Concomitant]
     Indication: PAIN
     Dosage: 25 MG, PRN
  32. MAGNESIUM [Concomitant]
     Dosage: 250 MG, QD
  33. FUROSEMIDE [Concomitant]
     Indication: BLOOD PRESSURE
     Dosage: 40 MG, BID
  34. LORTAB [Concomitant]
     Indication: PAIN

REACTIONS (30)
  - FALL [None]
  - CARDIAC DISORDER [None]
  - HEAD INJURY [None]
  - ASTHENIA [None]
  - RETINAL TEAR [None]
  - KIDNEY INFECTION [None]
  - CERUMEN IMPACTION [None]
  - HAND FRACTURE [None]
  - EAR PAIN [None]
  - NAUSEA [None]
  - LUNG DISORDER [None]
  - RENAL IMPAIRMENT [None]
  - BLINDNESS UNILATERAL [None]
  - FOOT FRACTURE [None]
  - BLOOD PRESSURE INCREASED [None]
  - VISUAL IMPAIRMENT [None]
  - INJECTION SITE HAEMORRHAGE [None]
  - HYPOTENSION [None]
  - CARDIAC FAILURE CONGESTIVE [None]
  - ARTHROPATHY [None]
  - SWELLING [None]
  - POLLAKIURIA [None]
  - DIZZINESS [None]
  - LOSS OF CONSCIOUSNESS [None]
  - LYMPHADENOPATHY [None]
  - OEDEMA PERIPHERAL [None]
  - FEELING ABNORMAL [None]
  - EAR DISORDER [None]
  - MALAISE [None]
  - DYSPNOEA [None]
